FAERS Safety Report 13315481 (Version 2)
Quarter: 2018Q1

REPORT INFORMATION
  Report Type: Report from Study
  Country: IT (occurrence: IT)
  Receive Date: 20170310
  Receipt Date: 20180226
  Transmission Date: 20180508
  Serious: Yes (Death, Other)
  Sender: FDA-Public Use
  Company Number: IT-ELI_LILLY_AND_COMPANY-IT201703003067

PATIENT
  Age: 68 Year
  Sex: Female
  Weight: 80 kg

DRUGS (3)
  1. CETUXIMAB. [Suspect]
     Active Substance: CETUXIMAB
     Indication: COLON NEOPLASM
     Dosage: UNK, UNKNOWN
     Route: 042
     Dates: start: 20120102, end: 20120326
  2. ELOXATIN [Concomitant]
     Active Substance: OXALIPLATIN
     Indication: COLORECTAL CANCER METASTATIC
     Dosage: 5 MG/ML, (150 MG) CYCLICAL
     Route: 042
     Dates: start: 20111222, end: 20120326
  3. FLUOROURACILE TEVA [Concomitant]
     Active Substance: FLUOROURACIL
     Indication: COLORECTAL CANCER METASTATIC
     Dosage: 1700 MG (5 G/ML, CYCLICAL)
     Route: 042
     Dates: start: 20111222, end: 20120326

REACTIONS (6)
  - Tachycardia [Fatal]
  - Palpitations [Fatal]
  - Asthenia [Fatal]
  - Hyponatraemia [Fatal]
  - Blood potassium decreased [Fatal]
  - Hyperglycaemia [Fatal]

NARRATIVE: CASE EVENT DATE: 20120123
